FAERS Safety Report 4546630-8 (Version None)
Quarter: 2005Q1

REPORT INFORMATION
  Report Type: 
  Country: None (occurrence: None)
  Receive Date: 20050103
  Receipt Date: 20041220
  Transmission Date: 20050727
  Serious: Yes (Hospitalization)
  Sender: FDA-Public Use
  Company Number: 2004102386

PATIENT
  Age: 44 Year
  Sex: Male

DRUGS (4)
  1. DILANTIN [Suspect]
     Indication: CONVULSION
  2. CLOZAPINE [Suspect]
     Indication: SCHIZOPHRENIA, PARANOID TYPE
     Dosage: 250 MG (1 D), ORAL
     Route: 048
     Dates: start: 20000301
  3. RISPERDAL [Concomitant]
  4. DISULFIRAM [Concomitant]

REACTIONS (6)
  - CARDIAC DISORDER [None]
  - CONDITION AGGRAVATED [None]
  - CONVULSION [None]
  - COORDINATION ABNORMAL [None]
  - PRE-EXISTING DISEASE [None]
  - THERAPEUTIC AGENT TOXICITY [None]
